FAERS Safety Report 19197338 (Version 2)
Quarter: 2021Q3

REPORT INFORMATION
  Report Type: Report from Study
  Country: None (occurrence: CA)
  Receive Date: 20210430
  Receipt Date: 20210819
  Transmission Date: 20211014
  Serious: Yes (Other)
  Sender: FDA-Public Use
  Company Number: CA-ABBVIE-21K-028-3881093-00

PATIENT
  Age: 55 Year
  Sex: Female

DRUGS (2)
  1. RINVOQ [Suspect]
     Active Substance: UPADACITINIB
     Route: 048
     Dates: start: 2021
  2. RINVOQ [Suspect]
     Active Substance: UPADACITINIB
     Indication: RHEUMATOID ARTHRITIS
     Route: 048
     Dates: start: 20201006, end: 20210418

REACTIONS (9)
  - Lower limb fracture [Unknown]
  - Rib fracture [Unknown]
  - Ear infection [Unknown]
  - Rheumatoid arthritis [Recovering/Resolving]
  - Neck pain [Unknown]
  - Middle ear prosthesis removal [Unknown]
  - Road traffic accident [Unknown]
  - Cyst [Unknown]
  - Ear infection [Recovered/Resolved]

NARRATIVE: CASE EVENT DATE: 2020
